FAERS Safety Report 16443107 (Version 1)
Quarter: 2019Q2

REPORT INFORMATION
  Report Type: Other
  Country: None (occurrence: CN)
  Receive Date: 20190617
  Receipt Date: 20190617
  Transmission Date: 20190711
  Serious: Yes (Disabling)
  Sender: FDA-Public Use
  Company Number: CN-JIANGSU HENGRUI MEDICINE CO., LTD.-2069283

PATIENT
  Age: 54 Year
  Sex: Male
  Weight: 60 kg

DRUGS (1)
  1. IRINOTECAN HYDROCHLORIDE INJECTION, 20 MG/ML (2 ML AND 5 ML VIALS) (AN [Suspect]
     Active Substance: IRINOTECAN HYDROCHLORIDE
     Indication: RECTAL CANCER
     Dates: start: 20190514, end: 20190514

REACTIONS (1)
  - Blood bilirubin increased [Recovering/Resolving]

NARRATIVE: CASE EVENT DATE: 20190517
